FAERS Safety Report 16840565 (Version 2)
Quarter: 2019Q4

REPORT INFORMATION
  Report Type: Report from Study
  Country: DE (occurrence: DE)
  Receive Date: 20190923
  Receipt Date: 20191019
  Transmission Date: 20200122
  Serious: Yes (Other)
  Sender: FDA-Public Use
  Company Number: PHHY2019DE008886

PATIENT
  Sex: Female
  Weight: 80 kg

DRUGS (3)
  1. KISQALI [Suspect]
     Active Substance: RIBOCICLIB
     Indication: BREAST CANCER METASTATIC
     Dosage: 600 MG, 21 DAYS, 7 DAYS PAUSE
     Route: 048
     Dates: start: 20180822, end: 20181115
  2. LETROZOLE 1A PHARMA [Suspect]
     Active Substance: LETROZOLE
     Indication: BREAST CANCER METASTATIC
     Dosage: 2.5 MG, QD
     Route: 048
     Dates: start: 20180801
  3. KISQALI [Suspect]
     Active Substance: RIBOCICLIB
     Dosage: 600 MG, 21 DAYS, 7 DAYS PAUSE
     Route: 048
     Dates: start: 20181122

REACTIONS (6)
  - Onychoclasis [Not Recovered/Not Resolved]
  - Alopecia [Recovered/Resolved]
  - Neutrophil count decreased [Unknown]
  - Psychotic disorder [Recovering/Resolving]
  - Bronchitis [Recovered/Resolved]
  - Anxiety [Recovering/Resolving]

NARRATIVE: CASE EVENT DATE: 20190109
